FAERS Safety Report 9653178 (Version 1)
Quarter: 2013Q4

REPORT INFORMATION
  Report Type: Spontaneous
  Country: US (occurrence: US)
  Receive Date: 20131029
  Receipt Date: 20131029
  Transmission Date: 20140711
  Serious: Yes (Hospitalization, Other)
  Sender: FDA-Public Use
  Company Number: US-GLAXOSMITHKLINE-A1047159A

PATIENT
  Age: 72 Year
  Sex: Male

DRUGS (11)
  1. ADVAIR [Suspect]
     Indication: ASTHMA
     Dosage: 1PUFF PER DAY
     Route: 055
  2. MUCINEX [Concomitant]
  3. ALLEGRA [Concomitant]
  4. METOPROLOL [Concomitant]
  5. FUROSEMIDE [Concomitant]
  6. SUCRALFATE [Concomitant]
  7. VITAMIN [Concomitant]
  8. CENTRUM SILVER [Concomitant]
  9. FLECAINIDE [Concomitant]
  10. PENICILLIN [Concomitant]
  11. GINKGO [Concomitant]

REACTIONS (3)
  - Candida infection [Not Recovered/Not Resolved]
  - Clostridium difficile infection [Unknown]
  - Diarrhoea [Not Recovered/Not Resolved]
